FAERS Safety Report 23486754 (Version 1)
Quarter: 2024Q1

REPORT INFORMATION
  Report Type: Spontaneous
  Country: US (occurrence: US)
  Receive Date: 20240206
  Receipt Date: 20240206
  Transmission Date: 20240410
  Serious: No
  Sender: FDA-Public Use
  Company Number: US-BRISTOL-MYERS SQUIBB COMPANY-2024-018943

PATIENT
  Age: 83 Year
  Sex: Male

DRUGS (1)
  1. INREBIC [Suspect]
     Active Substance: FEDRATINIB HYDROCHLORIDE
     Indication: Product used for unknown indication
     Dosage: FREQ : TAKE 4 CAPSULES BY MOUTH DAILY WITH OR WITHOUT FOOD
     Route: 048

REACTIONS (4)
  - Headache [Unknown]
  - Arthralgia [Unknown]
  - Pruritus [Unknown]
  - Fatigue [Unknown]
